FAERS Safety Report 4563081-0 (Version None)
Quarter: 2005Q1

REPORT INFORMATION
  Report Type: 
  Country: None (occurrence: None)
  Receive Date: 20050127
  Receipt Date: 20050114
  Transmission Date: 20050727
  Serious: Yes (Other)
  Sender: FDA-Public Use
  Company Number: NSADSS2002006766

PATIENT
  Sex: Female

DRUGS (9)
  1. REMICADE [Suspect]
     Route: 041
     Dates: start: 20011217
  2. REMICADE [Suspect]
     Indication: RHEUMATOID ARTHRITIS
     Route: 041
     Dates: start: 20011217
  3. METHOTREXATE [Concomitant]
  4. NONSTEROIDAL ANTI-INFLAMMATORY AGENT NOS [Concomitant]
  5. PREDNISOLONE [Concomitant]
     Dates: end: 20020801
  6. ORUDIS [Concomitant]
  7. FOLACIN [Concomitant]
  8. FOLACIN [Concomitant]
  9. CALCICHEW D3 [Concomitant]
     Dosage: 1 TABLET TWICE A DAY
     Route: 049

REACTIONS (7)
  - DIPLOPIA [None]
  - DISTURBANCE IN ATTENTION [None]
  - DIZZINESS [None]
  - MULTIPLE SCLEROSIS [None]
  - NEOPLASM [None]
  - VESTIBULAR NEURONITIS [None]
  - VISUAL DISTURBANCE [None]
